FAERS Safety Report 8280541-X (Version None)
Quarter: 2012Q2

REPORT INFORMATION
  Report Type: 
  Country: None (occurrence: None)
  Receive Date: 20120412
  Receipt Date: 20110830
  Transmission Date: 20120825
  Serious: No
  Sender: FDA-Public Use
  Company Number: US-ASTRAZENECA-2010SE24541

PATIENT
  Age: 62 Year
  Sex: Female

DRUGS (3)
  1. REGLAN [Concomitant]
  2. NEXIUM [Suspect]
     Route: 048
  3. ACIPHEX [Concomitant]

REACTIONS (6)
  - DRUG DOSE OMISSION [None]
  - PARKINSON'S DISEASE [None]
  - DRUG INEFFECTIVE [None]
  - SPEECH DISORDER [None]
  - MALAISE [None]
  - GASTROOESOPHAGEAL REFLUX DISEASE [None]
